FAERS Safety Report 6195554-1 (Version None)
Quarter: 2009Q2

REPORT INFORMATION
  Report Type: 
  Country: None (occurrence: None)
  Receive Date: 20090519
  Receipt Date: 20090512
  Transmission Date: 20091009
  Serious: Yes (Hospitalization, Other)
  Sender: FDA-Public Use
  Company Number: PHHY2009NO16231

PATIENT
  Sex: Female

DRUGS (2)
  1. EXFORGE [Suspect]
     Indication: HYPERTENSION
     Dosage: 80/5 MG
     Route: 048
     Dates: start: 20090309
  2. COAPROVEL [Concomitant]

REACTIONS (7)
  - ARTERIOSCLEROSIS [None]
  - DIARRHOEA [None]
  - DIZZINESS [None]
  - HEART SOUNDS ABNORMAL [None]
  - NAUSEA [None]
  - ORTHOSTATIC HYPOTENSION [None]
  - PALPITATIONS [None]
